FAERS Safety Report 9408885 (Version 2)
Quarter: 2013Q3

REPORT INFORMATION
  Report Type: Report from Study
  Country: US (occurrence: US)
  Receive Date: 20130719
  Receipt Date: 20130825
  Transmission Date: 20140515
  Serious: Yes (Hospitalization)
  Sender: FDA-Public Use
  Company Number: US-PFIZER INC-2013206566

PATIENT
  Age: 47 Year
  Sex: Female
  Weight: 41.81 kg

DRUGS (30)
  1. TORISEL [Suspect]
     Indication: METASTATIC RENAL CELL CARCINOMA
     Dosage: 25 MG, D1, 8, 15, 22 EACH CYCLE
     Dates: start: 20130401, end: 20130702
  2. AVASTIN [Suspect]
     Indication: METASTATIC RENAL CELL CARCINOMA
     Dosage: 10 MG, D1 AND D15 EACH CYCLE
     Dates: start: 20130401, end: 20130625
  3. DICHLORALPHENAZONE/ISOMETHEPTENE/PARACETAMOL [Concomitant]
     Dosage: ACETAMINOPHEN 325 MG, ISOMETHEPTENE 65 MG, DICHLORALPHEN 100 MG, 1-2 CAPSULES, EVERY 8 HRS
     Route: 048
  4. ARANESP [Concomitant]
     Dosage: 500 UG/ML (IN POLYSORBATE) SYRINGE EVERY 3 WEEKS
     Route: 058
  5. ESTRADIOL [Concomitant]
     Dosage: 1 MG, 1X/DAY
     Route: 048
  6. FENTANYL [Concomitant]
     Dosage: 12 MCG/HR, 1 PATCH EVERY 72 HOURS
     Route: 062
  7. HYDROMORPHONE [Concomitant]
     Dosage: 2 MG TABLET, 1-2 TABLET (S), EVERY 4 HOURS
     Route: 048
  8. PLAQUENIL [Concomitant]
     Dosage: 200 MG, 1X/DAY
     Route: 048
  9. LIDOCAINE-PRILOCAINE [Concomitant]
     Dosage: 1 APPLICATION TWICE A DAY AS NEEDED
     Route: 061
  10. LORAZEPAM [Concomitant]
     Dosage: 1 MG EVERY EIGHT HOURS AS NEEDED
     Route: 048
  11. LOSARTAN [Concomitant]
     Dosage: 50 MG TABLET, 2 TABLETS, ONCE A DAY
     Route: 048
  12. METOCLOPRAMIDE HCL [Concomitant]
     Dosage: 5 MG, BEFORE A  MEAL
     Route: 048
  13. OMEPRAZOLE [Concomitant]
     Dosage: 40 MG, DELAYED RELEASE, ONCE A DAY
     Route: 048
  14. ONDANSETRON [Concomitant]
     Dosage: 4 MG, DISINTEGRATING TABLET, 1-2 TABLET(S) THREE TIMES A DAY
     Route: 048
  15. PREDNISONE [Concomitant]
     Dosage: 5 MG, 1X/DAY
     Route: 048
  16. RANITIDINE HCL [Concomitant]
     Dosage: 150 MG, 2 TABLETS, AT BEDTIME
     Route: 048
  17. TRANSDERM-SCOP [Concomitant]
     Dosage: 1.5 MG, 72 HR PATCH, EVERY 72 HRS AS NEEDED
     Route: 062
  18. SIMVASTATIN [Concomitant]
     Dosage: 20 MG, 1X/DAY
     Route: 048
  19. TIZANIDINE [Concomitant]
     Indication: MUSCLE SPASMS
     Dosage: 4 MG EVERY 6 HOURS AS NEEDED
     Route: 048
  20. TIZANIDINE [Concomitant]
     Dosage: UNK
  21. TRAMADOL [Concomitant]
     Indication: BREAKTHROUGH PAIN
     Dosage: 50 MG, 1/2-1 TABLET (S), THREE TIMES A DAY AS NEEDED
     Route: 048
  22. TYLENOL EXTRA-STRENGTH [Concomitant]
     Dosage: UNK
  23. BIOTENE [Concomitant]
     Dosage: UNK
  24. CALCIUM 500 [Concomitant]
     Dosage: UNK
  25. DEXTROPROPOXYPHENE POLY COMPLEX ER [Concomitant]
     Indication: COUGH
     Dosage: 30 MG/ 5 ML SUSP EXT RELEASE 12 HR, 5 ML EVERY 6 HOURS AS NEEDED
     Route: 048
  26. COLACE [Concomitant]
     Dosage: UNK
  27. IMODIUM A-D [Concomitant]
     Dosage: UNK
  28. AFRIN [Concomitant]
     Dosage: UNK
  29. ROBITUSSIN COUGH + COLD CF [Concomitant]
     Dosage: UNK
  30. VITAMIN D [Concomitant]
     Dosage: UNK

REACTIONS (5)
  - Pain [Recovered/Resolved]
  - Dehydration [Recovered/Resolved]
  - Vomiting [Recovered/Resolved]
  - Nausea [Recovered/Resolved]
  - Constipation [Not Recovered/Not Resolved]
